FAERS Safety Report 21985185 (Version 2)
Quarter: 2024Q3

REPORT INFORMATION
  Report Type: Spontaneous
  Country: JP (occurrence: JP)
  Receive Date: 20230213
  Receipt Date: 20240905
  Transmission Date: 20241016
  Serious: Yes (Other)
  Sender: ELI LILLY AND CO
  Company Number: JP-ELI_LILLY_AND_COMPANY-JP202302001465

PATIENT
  Age: 81 Year
  Sex: Male

DRUGS (3)
  1. TALTZ [Suspect]
     Active Substance: IXEKIZUMAB
     Indication: Pityriasis rubra pilaris
     Dosage: UNK
     Route: 058
  2. CYCLOSPORINE [Concomitant]
     Active Substance: CYCLOSPORINE
     Indication: Pityriasis rubra pilaris
     Dosage: UNK
     Route: 065
  3. APREMILAST [Concomitant]
     Active Substance: APREMILAST
     Indication: Pityriasis rubra pilaris
     Dosage: UNK
     Route: 065

REACTIONS (3)
  - Pemphigoid [Recovered/Resolved]
  - Off label use [Unknown]
  - Pityriasis rubra pilaris [Recovered/Resolved]
